FAERS Safety Report 18314155 (Version 1)
Quarter: 2020Q3

REPORT INFORMATION
  Report Type: Spontaneous
  Country: US (occurrence: US)
  Receive Date: 20200925
  Receipt Date: 20200925
  Transmission Date: 20201103
  Serious: Yes (Hospitalization)
  Sender: FDA-Public Use
  Company Number: US-JNJFOC-A-NJ2020-201919

PATIENT
  Age: 71 Year
  Sex: Male

DRUGS (1)
  1. OPSUMIT [Suspect]
     Active Substance: MACITENTAN
     Indication: PULMONARY ARTERIAL HYPERTENSION
     Dosage: 10 MG, QD
     Route: 065
     Dates: start: 20171004

REACTIONS (7)
  - Ammonia increased [Recovered/Resolved]
  - Hypertension [Unknown]
  - Back disorder [Unknown]
  - Thyroid disorder [Unknown]
  - Cognitive disorder [Unknown]
  - Infection [Unknown]
  - Anaemia [Unknown]
